FAERS Safety Report 6504784-8 (Version None)
Quarter: 2009Q4

REPORT INFORMATION
  Report Type: 
  Country: None (occurrence: None)
  Receive Date: 20091216
  Receipt Date: 20091209
  Transmission Date: 20100525
  Serious: Yes (Death)
  Sender: FDA-Public Use
  Company Number: 2009SP032250

PATIENT
  Age: 77 Year
  Sex: Male
  Weight: 53 kg

DRUGS (14)
  1. REMERON [Suspect]
     Indication: DEPRESSION
     Dosage: 15 MG; PO, 30 MG; PO
     Route: 048
     Dates: start: 20091009, end: 20091012
  2. REMERON [Suspect]
     Indication: DEPRESSION
     Dosage: 15 MG; PO, 30 MG; PO
     Route: 048
     Dates: start: 20091013, end: 20091021
  3. REFLEX (MIRTAZAPINE) [Suspect]
     Indication: DEPRESSION
     Dosage: 15 MG; PO
     Route: 048
     Dates: start: 20090926, end: 20091008
  4. TOLEDOMIN (MILNACIPRAN HYDROCHLORIDE) [Suspect]
     Indication: DRUG USE FOR UNKNOWN INDICATION
     Dosage: 15 MG; PO
     Route: 048
     Dates: start: 20090101, end: 20091021
  5. SUPIRIDE (CON.) [Concomitant]
  6. URIEF (SILODOSIN) (CON.) [Concomitant]
  7. BLADDERON (CON.) [Concomitant]
  8. EVIPROSTAT (CON.) [Concomitant]
  9. MYSLEE (CON.) [Concomitant]
  10. AMOBAN (CON.) [Concomitant]
  11. AMOBANTES KOBAYASHI KAKO (CON.) [Concomitant]
  12. FLUNITRAZEPAM (CON.) [Concomitant]
  13. SOLANAX (CON.) [Concomitant]
  14. CONSTAN (CON.) [Concomitant]

REACTIONS (3)
  - COMPLETED SUICIDE [None]
  - MANIA [None]
  - SUICIDAL IDEATION [None]
